FAERS Safety Report 6749421-2 (Version None)
Quarter: 2010Q2

REPORT INFORMATION
  Report Type: 
  Country: None (occurrence: None)
  Receive Date: 20100601
  Receipt Date: 20100525
  Transmission Date: 20101027
  Serious: Yes (Death, Hospitalization)
  Sender: FDA-Public Use
  Company Number: JP-BAYER-201012384BYL

PATIENT
  Age: 81 Year
  Sex: Male

DRUGS (11)
  1. SORAFENIB [Suspect]
     Indication: NON-SMALL CELL LUNG CANCER RECURRENT
     Dosage: TOTAL DAILY DOSE: 800 MG  UNIT DOSE: 200 MG
     Route: 048
     Dates: start: 20100223, end: 20100514
  2. P GUARD [Concomitant]
     Route: 048
  3. PANTOSIN [Concomitant]
     Route: 065
  4. MAGMITT [Concomitant]
     Route: 048
  5. OXINORM [Concomitant]
     Route: 048
  6. NAPROXEN [Concomitant]
     Route: 048
  7. GAMOFA D [Concomitant]
     Route: 048
  8. PURSENNID [Concomitant]
     Route: 048
  9. POTACOL-R [Concomitant]
     Indication: DECREASED APPETITE
     Route: 041
     Dates: start: 20100419, end: 20100420
  10. POTACOL-R [Concomitant]
     Route: 041
     Dates: start: 20100426, end: 20100426
  11. CANDESARTAN CILEXETIL [Concomitant]
     Indication: HYPERTENSION
     Route: 048

REACTIONS (3)
  - ATRIAL FIBRILLATION [None]
  - METABOLIC ACIDOSIS [None]
  - PNEUMONIA [None]
